FAERS Safety Report 12725047 (Version 10)
Quarter: 2018Q1

REPORT INFORMATION
  Report Type: Report from Study
  Country: US (occurrence: US)
  Receive Date: 20160908
  Receipt Date: 20180119
  Transmission Date: 20180508
  Serious: Yes (Hospitalization)
  Sender: FDA-Public Use
  Company Number: US-ACTELION-A-US2016-141582

PATIENT
  Age: 9 Month
  Sex: Male

DRUGS (32)
  1. ALBUTEROL. [Concomitant]
     Active Substance: ALBUTEROL
     Dosage: 2.5 MG/3MLUNK
     Route: 055
  2. CHLOROTHIAZIDE. [Concomitant]
     Active Substance: CHLOROTHIAZIDE
     Dosage: 250MG/5ML, ORAL SUSPENSION
  3. HYDROXYCHLOROQUINE [Concomitant]
     Active Substance: HYDROXYCHLOROQUINE
     Dosage: 15 MG, BID
  4. MULTIVITAMIN [Concomitant]
     Active Substance: VITAMINS
  5. NACL [Concomitant]
     Active Substance: SODIUM CHLORIDE
     Dosage: 1.125 ML TID
  6. ACETAMINOPHEN. [Concomitant]
     Active Substance: ACETAMINOPHEN
     Dosage: 1.8 ML, Q4HRS
  7. BACITRACIN. [Concomitant]
     Active Substance: BACITRACIN
     Dosage: 500 UNIT/GRAM
     Route: 061
  8. ALBUTEROL. [Concomitant]
     Active Substance: ALBUTEROL
     Dosage: 0.63 MG/3 ML NEB, Q4HRS
  9. FUROSEMIDE. [Concomitant]
     Active Substance: FUROSEMIDE
     Dosage: 7.5 MG, BID
     Dates: start: 201603
  10. ALDACTONE [Concomitant]
     Active Substance: SPIRONOLACTONE
     Dosage: 7 MG, BID
     Dates: start: 20160427
  11. PULMICORT TURBUHALER [Concomitant]
     Active Substance: BUDESONIDE
     Dosage: 25 MG, BID
     Route: 045
     Dates: start: 201601
  12. SODIUM CHLORIDE. [Concomitant]
     Active Substance: SODIUM CHLORIDE
     Dosage: 1.125 ML, TID
  13. TRACLEER [Suspect]
     Active Substance: BOSENTAN
     Dosage: 20 MG, BID
     Route: 048
     Dates: start: 201607
  14. TADALAFIL [Concomitant]
     Active Substance: TADALAFIL
     Dosage: 5 MG, BID
     Dates: start: 201607
  15. SPIRONOLACTONE. [Concomitant]
     Active Substance: SPIRONOLACTONE
     Dosage: 5 MG/ML, BID
     Route: 048
  16. AZITHROMYCIN ANHYDROUS. [Concomitant]
     Active Substance: AZITHROMYCIN ANHYDROUS
     Dosage: 1.3 MG, MON, WED, FRI
  17. LANSOPRAZOLE. [Concomitant]
     Active Substance: LANSOPRAZOLE
     Dosage: 3 MG/ML SUSPENSION
  18. TADALAFIL [Concomitant]
     Active Substance: TADALAFIL
     Dosage: 1.9 ML, (9.5) MG BY G-TUBE QD
  19. PLAQUENIL [Concomitant]
     Active Substance: HYDROXYCHLOROQUINE SULFATE
     Dosage: 0.6 ML, BID
  20. TRACLEER [Suspect]
     Active Substance: BOSENTAN
     Dosage: 12.5 MG, BID
     Route: 048
  21. AZITHROMYCIN ANHYDROUS. [Concomitant]
     Active Substance: AZITHROMYCIN ANHYDROUS
     Dosage: 200 MG/5ML
     Route: 048
  22. FUROSEMIDE. [Concomitant]
     Active Substance: FUROSEMIDE
     Dosage: 10 MG/ML, ORAL SOLUTIONUNK
  23. LANSOPRAZOLE. [Concomitant]
     Active Substance: LANSOPRAZOLE
     Dosage: 7.5 MG, BID
     Dates: start: 201602
  24. BUDESONIDE. [Concomitant]
     Active Substance: BUDESONIDE
     Dosage: 2 ML, BID
  25. BUDESONIDE. [Concomitant]
     Active Substance: BUDESONIDE
     Dosage: 0.25/2MLUNK
  26. CHLOROTHIAZIDE. [Concomitant]
     Active Substance: CHLOROTHIAZIDE
     Dosage: 0.8 ML, BID
  27. SILDENAFIL. [Concomitant]
     Active Substance: SILDENAFIL
  28. PLAQUENIL [Concomitant]
     Active Substance: HYDROXYCHLOROQUINE SULFATE
     Dosage: 25 MG/ML, UNK
  29. TRACLEER [Suspect]
     Active Substance: BOSENTAN
     Indication: PULMONARY HYPERTENSION
     Dosage: 15.625 MG, BID
     Route: 048
     Dates: start: 20160713
  30. HYDROXYCHLOROQUINE [Concomitant]
     Active Substance: HYDROXYCHLOROQUINE
     Dosage: 20 MG, BID
  31. NACL [Concomitant]
     Active Substance: SODIUM CHLORIDE
     Dosage: 1 MEQ/KG, UNK
     Dates: start: 201609
  32. RANITIDINE. [Concomitant]
     Active Substance: RANITIDINE
     Dosage: 1.7 ML, Q12HRS

REACTIONS (20)
  - Diarrhoea [Recovered/Resolved]
  - Acute respiratory failure [Not Recovered/Not Resolved]
  - Use of accessory respiratory muscles [Recovering/Resolving]
  - Dehydration [Recovered/Resolved]
  - Nausea [Recovered/Resolved]
  - Unevaluable event [Unknown]
  - Hypoxia [Recovering/Resolving]
  - Pneumonia [Unknown]
  - Respiratory syncytial virus infection [Not Recovered/Not Resolved]
  - Dyspnoea [Unknown]
  - Viral infection [Recovered/Resolved]
  - Irritability [Unknown]
  - Aspiration [Unknown]
  - Respiratory distress [Recovering/Resolving]
  - Tachypnoea [Recovering/Resolving]
  - Pulmonary arterial hypertension [Recovering/Resolving]
  - Rhinorrhoea [Recovering/Resolving]
  - Poor feeding infant [Unknown]
  - Cough [Unknown]
  - Condition aggravated [Recovering/Resolving]

NARRATIVE: CASE EVENT DATE: 20160822
